FAERS Safety Report 16266316 (Version 1)
Quarter: 2019Q2

REPORT INFORMATION
  Report Type: Spontaneous
  Country: US (occurrence: US)
  Receive Date: 20190502
  Receipt Date: 20190502
  Transmission Date: 20190711
  Serious: Yes (Other)
  Sender: FDA-Public Use
  Company Number: US-MALLINCKRODT-T201903398

PATIENT
  Sex: Male

DRUGS (8)
  1. METHADONE [Suspect]
     Active Substance: METHADONE HYDROCHLORIDE
     Dosage: 15 MG (EXPRESS SCRIPTS) DAILY (10 MG DAY / 5 MG NIGHT)
     Route: 065
     Dates: start: 201901
  2. OXYCODONE [Suspect]
     Active Substance: OXYCODONE
     Dosage: 5 MG, 2-4 DOSAGES
     Route: 065
  3. METHADONE [Suspect]
     Active Substance: METHADONE HYDROCHLORIDE
     Indication: PAIN
     Dosage: 5 MG, TWICE DAILY (EXPRESS)
     Route: 065
  4. METHADONE [Suspect]
     Active Substance: METHADONE HYDROCHLORIDE
     Indication: PAIN
     Dosage: 10 MG, TWICE DAILY
     Route: 065
  5. OXYCODONE [Suspect]
     Active Substance: OXYCODONE
     Indication: BREAKTHROUGH PAIN
     Dosage: 5 MG UNK
     Route: 065
  6. OXYCODONE [Suspect]
     Active Substance: OXYCODONE
     Dosage: 5 MG,  8-10 DOSES EACH DAY
     Route: 065
     Dates: start: 2018
  7. METHADONE [Suspect]
     Active Substance: METHADONE HYDROCHLORIDE
     Dosage: 10 MG, UNK (DIFFERENT PRESCRIPTION PROVIDER, EXPRESS SCRIPTS)
     Route: 065
     Dates: start: 20181226, end: 2018
  8. METHADONE [Suspect]
     Active Substance: METHADONE HYDROCHLORIDE
     Dosage: 20 MG, UNK (EXPRESS SCRIPTS)
     Route: 065
     Dates: start: 2018

REACTIONS (6)
  - Pancreatitis [Unknown]
  - Constipation [Unknown]
  - Drug ineffective [Unknown]
  - Decreased appetite [Unknown]
  - Diarrhoea [Unknown]
  - Suspected counterfeit product [Unknown]

NARRATIVE: CASE EVENT DATE: 2018
